FAERS Safety Report 14443812 (Version 4)
Quarter: 2018Q3

REPORT INFORMATION
  Report Type: Spontaneous
  Country: US (occurrence: US)
  Receive Date: 20180125
  Receipt Date: 20180926
  Transmission Date: 20181010
  Serious: No
  Sender: FDA-Public Use
  Company Number: US-ACTELION-A-NJ2016-146639

PATIENT
  Age: 64 Year
  Sex: Female
  Weight: 108.84 kg

DRUGS (2)
  1. COUMADIN [Concomitant]
     Active Substance: WARFARIN SODIUM
  2. TRACLEER [Suspect]
     Active Substance: BOSENTAN
     Indication: PULMONARY ARTERIAL HYPERTENSION
     Dosage: 125 MG, BID
     Route: 048

REACTIONS (12)
  - Drug dose omission [Unknown]
  - International normalised ratio increased [Recovered/Resolved]
  - Sinus disorder [Unknown]
  - Cough [Unknown]
  - Pyrexia [Recovering/Resolving]
  - Pulmonary congestion [Unknown]
  - Sinusitis [Unknown]
  - Eye operation [Unknown]
  - Malaise [Unknown]
  - Influenza like illness [Unknown]
  - Vitamin D decreased [Unknown]
  - Hypersensitivity [Unknown]

NARRATIVE: CASE EVENT DATE: 201803
